FAERS Safety Report 4622603-1 (Version None)
Quarter: 2005Q1

REPORT INFORMATION
  Report Type: 
  Country: None (occurrence: None)
  Receive Date: 20050330
  Receipt Date: 20050317
  Transmission Date: 20050727
  Serious: Yes (Hospitalization)
  Sender: FDA-Public Use
  Company Number: US-MERCK-0503USA03031

PATIENT
  Age: 68 Year
  Sex: Male

DRUGS (18)
  1. ZOCOR [Suspect]
     Route: 048
     Dates: end: 20050301
  2. ZOCOR [Suspect]
     Route: 048
     Dates: start: 20050321
  3. ASPIRIN [Concomitant]
     Route: 065
  4. CARBIDOPA AND LEVODOPA [Concomitant]
     Route: 065
  5. PLAVIX [Concomitant]
     Route: 065
  6. PEPCID [Concomitant]
     Route: 048
  7. LASIX [Concomitant]
     Route: 065
  8. NEURONTIN [Concomitant]
     Route: 065
  9. ISOSORBIDE MONONITRATE [Concomitant]
     Route: 065
  10. LORATADINE [Concomitant]
     Route: 065
  11. METOPROLOL [Concomitant]
     Route: 065
  12. COZAAR [Concomitant]
     Route: 048
  13. OMEPRAZOLE [Concomitant]
     Route: 065
  14. [THERAPY UNSPECIFIED] [Concomitant]
     Route: 065
  15. DARBEPOETIN ALFA [Concomitant]
     Route: 065
  16. NITROGLYCERIN [Concomitant]
     Route: 060
  17. INSULIN [Concomitant]
     Route: 065
  18. SERTRALINE HYDROCHLORIDE [Concomitant]
     Route: 065

REACTIONS (8)
  - ABDOMINAL DISCOMFORT [None]
  - CARDIAC FAILURE CONGESTIVE [None]
  - DIALYSIS [None]
  - MYALGIA [None]
  - MYOCARDIAL INFARCTION [None]
  - PULMONARY OEDEMA [None]
  - RENAL FAILURE CHRONIC [None]
  - UPPER RESPIRATORY TRACT INFECTION [None]
